FAERS Safety Report 12166259 (Version 6)
Quarter: 2019Q2

REPORT INFORMATION
  Report Type: Report from Study
  Country: CN (occurrence: CN)
  Receive Date: 20160309
  Receipt Date: 20190405
  Transmission Date: 20190711
  Serious: Yes (Hospitalization, Other)
  Sender: FDA-Public Use
  Company Number: PHHY2016CN029931

PATIENT
  Age: 25 Year
  Sex: Female
  Weight: 51 kg

DRUGS (140)
  1. METHYLPREDNISOLONE. [Suspect]
     Active Substance: METHYLPREDNISOLONE
     Dosage: 40 MG,SOS
     Route: 065
     Dates: start: 20151218, end: 20151218
  2. TACROLIMUS. [Suspect]
     Active Substance: TACROLIMUS
     Dosage: 3.5 MG, QD
     Route: 065
     Dates: start: 20151213, end: 20151217
  3. TACROLIMUS. [Suspect]
     Active Substance: TACROLIMUS
     Dosage: 3.5 MG, QD
     Route: 065
     Dates: start: 20151216, end: 20151224
  4. FK 506 [Concomitant]
     Active Substance: TACROLIMUS
     Indication: PROPHYLAXIS AGAINST TRANSPLANT REJECTION
     Dosage: 3 MG, QD
     Route: 065
     Dates: start: 20160118, end: 20160214
  5. ALBUMIN [Concomitant]
     Active Substance: ALBUMIN HUMAN
     Indication: SUPPLEMENTATION THERAPY
     Dosage: 20 G, SOS
     Route: 042
     Dates: start: 20151204, end: 20151204
  6. BISOPROLOL FUMARATE. [Concomitant]
     Active Substance: BISOPROLOL FUMARATE
     Indication: HYPERTENSION
     Dosage: 5 MG, QD
     Route: 048
     Dates: start: 20151210, end: 20151210
  7. ALOSTIN//ALPROSTADIL [Concomitant]
     Dosage: 10 OT, QD
     Route: 042
     Dates: start: 20160115, end: 20160121
  8. MEROPENEM. [Concomitant]
     Active Substance: MEROPENEM
     Indication: INFECTION PROPHYLAXIS
     Dosage: 500 MG, TID
     Route: 042
     Dates: start: 20151221, end: 20151222
  9. SMECTA [Concomitant]
     Active Substance: MONTMORILLONITE
     Indication: DIARRHOEA
     Dosage: 6 G, SOS
     Route: 048
     Dates: start: 20151206, end: 20151206
  10. VANCOMYCIN HYDROCHLORIDE. [Concomitant]
     Active Substance: VANCOMYCIN HYDROCHLORIDE
     Dosage: 500 MG, SOS
     Route: 042
     Dates: start: 20151224, end: 20151230
  11. DOPAMINE HYCROCHLORIDE [Concomitant]
     Active Substance: DOPAMINE HYDROCHLORIDE
     Dosage: 10 MG, SOS
     Route: 042
     Dates: start: 20151222, end: 20151222
  12. RECOMBINANT HUMAN ERYTHROPOIETIN [Concomitant]
     Active Substance: ERYTHROPOIETIN
     Dosage: 1000 IU, SOS
     Route: 061
     Dates: start: 20151211, end: 20151211
  13. COENZYME [Concomitant]
     Active Substance: UBIDECARENONE
     Indication: SUPPLEMENTATION THERAPY
     Dosage: 2 DF, QD
     Route: 042
     Dates: start: 20151204, end: 20151204
  14. MUCOSOLVAN [Concomitant]
     Active Substance: AMBROXOL HYDROCHLORIDE
     Dosage: 15 MG, SOS
     Route: 055
     Dates: start: 20151224, end: 20151224
  15. LEVOCARNITINE. [Concomitant]
     Active Substance: LEVOCARNITINE
     Dosage: 2 VIALS, QD
     Route: 042
     Dates: start: 20151204, end: 20151218
  16. MEPREDNISONE [Concomitant]
     Active Substance: MEPREDNISONE
     Indication: PROPHYLAXIS AGAINST TRANSPLANT REJECTION
     Dosage: 15 MG, QD
     Route: 065
     Dates: start: 20160108, end: 20160214
  17. MYFORTIC [Suspect]
     Active Substance: MYCOPHENOLATE SODIUM
     Indication: RENAL TRANSPLANT
     Dosage: 720 MG, QD
     Route: 065
     Dates: start: 20151203, end: 20151203
  18. MYFORTIC [Suspect]
     Active Substance: MYCOPHENOLATE SODIUM
     Dosage: 1440 MG, QD
     Route: 065
     Dates: start: 20151205, end: 20151205
  19. MYFORTIC [Suspect]
     Active Substance: MYCOPHENOLATE SODIUM
     Dosage: 720 MG, QD
     Route: 065
     Dates: start: 20151222, end: 20160107
  20. METHYLPREDNISOLONE. [Suspect]
     Active Substance: METHYLPREDNISOLONE
     Indication: RENAL TRANSPLANT
     Dosage: 500 MG, QD
     Route: 065
     Dates: start: 20151203, end: 20151203
  21. PREDNISONE. [Suspect]
     Active Substance: PREDNISONE
     Indication: RENAL TRANSPLANT
     Dosage: 20 MG, QD
     Route: 065
     Dates: start: 20151206, end: 20151219
  22. TACROLIMUS. [Suspect]
     Active Substance: TACROLIMUS
     Dosage: 3 MG, QD
     Route: 065
     Dates: start: 20151225, end: 20160112
  23. SODIUM CHLORIDE COMPOUND INJECTION [Concomitant]
     Dosage: 50 ML, UNK
     Route: 042
     Dates: start: 20151204, end: 20151204
  24. SODIUM CHLORIDE COMPOUND INJECTION [Concomitant]
     Dosage: 100 ML, SOS
     Route: 042
     Dates: start: 20151218, end: 20151218
  25. MOXIFLOXACIN//MOXIFLOXACIN HYDROCHLORIDE [Concomitant]
     Dosage: 400 MG, SOS
     Route: 042
     Dates: start: 20151213, end: 20151213
  26. CRAVIT [Concomitant]
     Active Substance: LEVOFLOXACIN
     Indication: INFECTION PROPHYLAXIS
     Dosage: 100 ML, SOS
     Route: 042
     Dates: start: 20151204, end: 20151204
  27. LIVARACINE [Concomitant]
     Indication: ANTICOAGULANT THERAPY
     Dosage: 2500 IU,SOS
     Route: 061
     Dates: start: 20151218, end: 20151218
  28. LIVARACINE [Concomitant]
     Dosage: 2500 IU, SOS
     Route: 042
     Dates: start: 20151225, end: 20151225
  29. ALOSTIN//ALPROSTADIL [Concomitant]
     Indication: POOR PERIPHERAL CIRCULATION
     Dosage: 10 OT, QD
     Route: 042
     Dates: start: 20151204, end: 20151204
  30. PANTOPRAZOLE [Concomitant]
     Active Substance: PANTOPRAZOLE
     Indication: GASTROOESOPHAGEAL REFLUX PROPHYLAXIS
     Dosage: 40 MG, SOS
     Route: 042
     Dates: start: 20151204, end: 20151204
  31. SCOPOLAMINE HYDROBROMIDE. [Concomitant]
     Active Substance: SCOPOLAMINE HYDROBROMIDE
     Indication: GASTROOESOPHAGEAL REFLUX PROPHYLAXIS
     Dosage: 300 MG, SOS
     Route: 030
     Dates: start: 20151230, end: 20151230
  32. DICLOFENAC SODIUM W/LIDOCAINE HYDROCHLORIDE [Concomitant]
     Indication: ANALGESIC THERAPY
  33. CEFOPERAZONE SODIUM W/SULBACTAM SODIUM [Concomitant]
     Indication: INFECTION PROPHYLAXIS
     Dosage: 1500 MG, BID
     Route: 042
     Dates: start: 20151217, end: 20151221
  34. SMECTA [Concomitant]
     Active Substance: MONTMORILLONITE
     Dosage: 3 G, SOS
     Route: 048
     Dates: start: 20160110, end: 20160110
  35. VASOREL [Concomitant]
     Active Substance: TRIMETAZIDINE DIHYDROCHLORIDE
     Indication: PROPHYLAXIS
     Dosage: 20 MG, TID
     Route: 048
     Dates: start: 20151206, end: 20151223
  36. VANCOMYCIN HYDROCHLORIDE. [Concomitant]
     Active Substance: VANCOMYCIN HYDROCHLORIDE
     Indication: INFECTION PROPHYLAXIS
     Dosage: 500 MG, BID
     Route: 042
     Dates: start: 20151222, end: 20151222
  37. CETIRIZINE HYDROCHLORIDE. [Concomitant]
     Active Substance: CETIRIZINE HYDROCHLORIDE
     Dosage: 10 MG, SOS
     Route: 048
     Dates: start: 20151225, end: 20151225
  38. DOPAMINE HYCROCHLORIDE [Concomitant]
     Active Substance: DOPAMINE HYDROCHLORIDE
     Dosage: 10 MG, SOS
     Route: 048
     Dates: start: 20160101, end: 20160108
  39. ALLERZIN//PROMETHAZINE HYDROCHLORIDE [Concomitant]
     Dosage: 25 MG, SOS
     Route: 030
     Dates: start: 20151220, end: 20151225
  40. CEFOTIAM [Concomitant]
     Active Substance: CEFOTIAM
     Indication: INFECTION PROPHYLAXIS
     Dosage: 1000 MG, SOS
     Route: 042
     Dates: start: 20151204, end: 20151210
  41. BASILIXIMAB [Suspect]
     Active Substance: BASILIXIMAB
     Dosage: 20 MG, QD
     Route: 065
     Dates: start: 20151207, end: 20151207
  42. PREDNISONE. [Suspect]
     Active Substance: PREDNISONE
     Dosage: 20 MG, UNK
     Route: 065
     Dates: start: 20151220
  43. TACROLIMUS. [Suspect]
     Active Substance: TACROLIMUS
     Dosage: 3 MG, QD
     Route: 065
     Dates: start: 20160118
  44. SODIUM CHLORIDE COMPOUND INJECTION [Concomitant]
     Indication: INFUSION
     Dosage: 1000 ML, QD
     Route: 042
     Dates: start: 20151204, end: 20151204
  45. SODIUM CHLORIDE COMPOUND INJECTION [Concomitant]
     Dosage: 100 ML, QD
     Route: 042
     Dates: start: 20151204, end: 20151206
  46. SODIUM CHLORIDE COMPOUND INJECTION [Concomitant]
     Dosage: 500 ML, SOS
     Dates: start: 20160120, end: 20160120
  47. MOXIFLOXACIN//MOXIFLOXACIN HYDROCHLORIDE [Concomitant]
     Indication: INFLAMMATION
     Dosage: 400 MG, QD
     Route: 042
     Dates: start: 20151210, end: 20151214
  48. GLUTATHIONE [Concomitant]
     Active Substance: GLUTATHIONE
     Indication: PROPHYLAXIS
     Dosage: 900 MG, QD
     Route: 042
     Dates: start: 20151204, end: 20151204
  49. HEPARIN SODIUM. [Concomitant]
     Active Substance: HEPARIN SODIUM
     Indication: PRODUCT USED FOR UNKNOWN INDICATION
     Dosage: 6250 IU, QD
     Route: 042
     Dates: start: 20151204, end: 20151217
  50. CRAVIT [Concomitant]
     Active Substance: LEVOFLOXACIN
     Dosage: 100 ML, QD
     Route: 042
     Dates: start: 20151204, end: 20151208
  51. CRAVIT [Concomitant]
     Active Substance: LEVOFLOXACIN
     Dosage: 100 ML, SOS
     Route: 042
     Dates: start: 20151220, end: 20151220
  52. PANTOPRAZOLE [Concomitant]
     Active Substance: PANTOPRAZOLE
     Dosage: 40 MG, QD
     Route: 042
     Dates: start: 20151220, end: 20151223
  53. CEFOPERAZONE SODIUM W/SULBACTAM SODIUM [Concomitant]
     Indication: INFLAMMATION
     Dosage: 1500 MG, BID
     Route: 042
     Dates: start: 20151210, end: 20151216
  54. SMECTA [Concomitant]
     Active Substance: MONTMORILLONITE
     Dosage: 6 G, SOS
     Route: 048
     Dates: start: 20151207, end: 20151207
  55. DILTIAZEM HYDROCHLORIDE. [Concomitant]
     Active Substance: DILTIAZEM HYDROCHLORIDE
     Indication: POOR PERIPHERAL CIRCULATION
     Dosage: 30 MG, SOS
     Route: 048
     Dates: start: 20151206, end: 20151206
  56. VANCOMYCIN HYDROCHLORIDE. [Concomitant]
     Active Substance: VANCOMYCIN HYDROCHLORIDE
     Indication: INFLAMMATION
     Dosage: 500 MG, SOS
     Route: 042
     Dates: start: 20151222, end: 20151222
  57. VANCOMYCIN HYDROCHLORIDE. [Concomitant]
     Active Substance: VANCOMYCIN HYDROCHLORIDE
     Dosage: 500 MG, SOS
     Route: 042
     Dates: start: 20151223, end: 20151223
  58. DOPAMINE HYCROCHLORIDE [Concomitant]
     Active Substance: DOPAMINE HYDROCHLORIDE
     Dosage: 10 MG, QD
     Route: 042
     Dates: start: 20151222, end: 20151223
  59. POLYENE PHOSPHATIDYLCHOLINE [Concomitant]
     Active Substance: PHOSPHOLIPID
     Indication: PROPHYLAXIS
     Dosage: 456 MG, TID
     Route: 048
     Dates: start: 20151217, end: 20151223
  60. FUROSEMID ^DAK^ [Concomitant]
     Dosage: 120 MG, SOS
     Route: 042
     Dates: start: 20151204, end: 20151204
  61. FUROSEMID ^DAK^ [Concomitant]
     Dosage: 40 MG, SOS
     Route: 042
     Dates: start: 20151222, end: 20151222
  62. LEVOCARNITINE. [Concomitant]
     Active Substance: LEVOCARNITINE
     Indication: PROPHYLAXIS
     Dosage: 2 VIALS, SOS
     Route: 042
     Dates: start: 20151204, end: 20151204
  63. MUCOSOLVAN [Concomitant]
     Active Substance: AMBROXOL HYDROCHLORIDE
     Dosage: 30 MG, SOS
     Route: 042
     Dates: start: 20151224, end: 20151224
  64. MYFORTIC [Suspect]
     Active Substance: MYCOPHENOLATE SODIUM
     Dosage: 540 MG, QD
     Route: 065
     Dates: start: 20151218, end: 20151221
  65. TACROLIMUS. [Suspect]
     Active Substance: TACROLIMUS
     Indication: RENAL TRANSPLANT
     Dosage: 5 MG, QD
     Route: 065
     Dates: start: 20151205, end: 20151213
  66. SODIUM CHLORIDE COMPOUND INJECTION [Concomitant]
     Dosage: 100 ML, SOS
     Route: 042
     Dates: start: 20151211, end: 20151211
  67. MOXIFLOXACIN//MOXIFLOXACIN HYDROCHLORIDE [Concomitant]
     Indication: INFECTION PROPHYLAXIS
     Dosage: 400 MG, SOS
     Route: 042
     Dates: start: 20151212, end: 20151212
  68. ADALAT [Concomitant]
     Active Substance: NIFEDIPINE
     Dosage: 30 MG, SOS
     Route: 048
     Dates: start: 20151209, end: 20151209
  69. BISOPROLOL FUMARATE. [Concomitant]
     Active Substance: BISOPROLOL FUMARATE
     Dosage: 5 MG, QD
     Route: 065
     Dates: start: 20160101
  70. BACTERIAL LYSATES [Concomitant]
     Dosage: 7 MG, QD
     Route: 065
     Dates: start: 20151224, end: 20151224
  71. HEPARIN SODIUM. [Concomitant]
     Active Substance: HEPARIN SODIUM
     Dosage: 6250 IU, SOS
     Route: 042
     Dates: start: 20151213, end: 20151213
  72. ALOSTIN//ALPROSTADIL [Concomitant]
     Dosage: 10 OT, QD
     Route: 042
     Dates: start: 20151204, end: 20151223
  73. PANTOPRAZOLE [Concomitant]
     Active Substance: PANTOPRAZOLE
     Dosage: 40 MG, BID
     Route: 042
     Dates: start: 20151204, end: 20151220
  74. SMECTA [Concomitant]
     Active Substance: MONTMORILLONITE
     Dosage: 6 G, SOS
     Route: 048
     Dates: start: 20151229, end: 20151229
  75. CEPHAZOLINE SODIUM [Concomitant]
     Active Substance: CEFAZOLIN SODIUM
     Indication: SKIN TEST
     Dosage: 500 MG, SOS
     Route: 023
     Dates: start: 20151204, end: 20151204
  76. DOPAMINE HYCROCHLORIDE [Concomitant]
     Active Substance: DOPAMINE HYDROCHLORIDE
     Dosage: 10 MG, SOS
     Route: 048
     Dates: start: 20151228, end: 20151228
  77. ALLERZIN//PROMETHAZINE HYDROCHLORIDE [Concomitant]
     Dosage: 25 MG, SOS
     Route: 030
     Dates: start: 20151218, end: 20151218
  78. CEFOTIAM [Concomitant]
     Active Substance: CEFOTIAM
     Indication: INFLAMMATION
     Dosage: 1000 MG, BID
     Route: 042
     Dates: start: 20151204, end: 20151204
  79. FUROSEMID ^DAK^ [Concomitant]
     Dosage: 40 MG, SOS
     Route: 042
     Dates: start: 20151221, end: 20151221
  80. MUCOSOLVAN [Concomitant]
     Active Substance: AMBROXOL HYDROCHLORIDE
     Indication: PRODUCTIVE COUGH
     Dosage: 30 MG, TID
     Route: 042
     Dates: start: 20151208, end: 20151223
  81. MYFORTIC [Suspect]
     Active Substance: MYCOPHENOLATE SODIUM
     Dosage: 1080 MG, QD
     Route: 065
     Dates: start: 20151206, end: 20151207
  82. BASILIXIMAB [Suspect]
     Active Substance: BASILIXIMAB
     Indication: RENAL TRANSPLANT
     Dosage: 20 MG, QD
     Route: 065
     Dates: start: 20151203, end: 20151203
  83. METHYLPREDNISOLONE. [Suspect]
     Active Substance: METHYLPREDNISOLONE
     Dosage: 360 MG, QD
     Route: 065
     Dates: start: 20151206, end: 20151206
  84. TACROLIMUS. [Suspect]
     Active Substance: TACROLIMUS
     Dosage: 4.5 MG, QD
     Route: 065
     Dates: start: 20151213, end: 20151217
  85. FK 506 [Concomitant]
     Active Substance: TACROLIMUS
     Dosage: 2.5 MG, UNK
     Route: 065
  86. SODIUM CHLORIDE COMPOUND INJECTION [Concomitant]
     Dosage: 100 ML, SOS
     Route: 042
     Dates: start: 20151207, end: 20151207
  87. GLUTATHIONE [Concomitant]
     Active Substance: GLUTATHIONE
     Dosage: 900 MG, SOS
     Route: 042
     Dates: start: 20151204, end: 20151217
  88. BISOPROLOL FUMARATE. [Concomitant]
     Active Substance: BISOPROLOL FUMARATE
     Dosage: 5 MG, QD
     Route: 048
     Dates: start: 20151210, end: 20151223
  89. CRAVIT [Concomitant]
     Active Substance: LEVOFLOXACIN
     Indication: INFLAMMATION
     Dosage: 100 ML, SOS
     Route: 042
     Dates: start: 20151203, end: 20151203
  90. DESLANOSIDE [Concomitant]
     Active Substance: DESLANOSIDE
     Indication: CARDIAC FAILURE
     Dosage: 200 MG, SOS
     Route: 042
     Dates: start: 20151205, end: 20151205
  91. CETIRIZINE HYDROCHLORIDE. [Concomitant]
     Active Substance: CETIRIZINE HYDROCHLORIDE
     Indication: ALLERGY PROPHYLAXIS
     Dosage: 10 MG, SOS
     Route: 048
     Dates: start: 20151211, end: 20151211
  92. CETIRIZINE HYDROCHLORIDE. [Concomitant]
     Active Substance: CETIRIZINE HYDROCHLORIDE
     Dosage: 10 MG, SOS
     Route: 048
     Dates: start: 20151218, end: 20151218
  93. RECOMBINANT HUMAN ERYTHROPOIETIN [Concomitant]
     Active Substance: ERYTHROPOIETIN
     Dosage: 1000 IU, SOS
     Route: 061
     Dates: start: 20151218, end: 20151218
  94. MUCOSOLVAN [Concomitant]
     Active Substance: AMBROXOL HYDROCHLORIDE
     Dosage: 30 MG, BID
     Route: 042
     Dates: start: 20151224, end: 20151230
  95. FUROSEMID ^DAK^ [Concomitant]
     Dosage: 40 MG, SOS
     Route: 042
     Dates: start: 20151205, end: 20151205
  96. FUROSEMID ^DAK^ [Concomitant]
     Dosage: 40 MG, SOS
     Route: 042
     Dates: start: 20151219, end: 20151219
  97. MYFORTIC [Suspect]
     Active Substance: MYCOPHENOLATE SODIUM
     Dosage: 540 MG, QD
     Route: 065
     Dates: start: 20160101
  98. TACROLIMUS. [Suspect]
     Active Substance: TACROLIMUS
     Dosage: 20 MG, QD
     Route: 065
     Dates: start: 20151207, end: 20151207
  99. ALBUMIN [Concomitant]
     Active Substance: ALBUMIN HUMAN
     Dosage: 10 G, QD
     Route: 042
     Dates: start: 20151204, end: 20151206
  100. ADALAT [Concomitant]
     Active Substance: NIFEDIPINE
     Dosage: 30 MG, SOS
     Route: 048
     Dates: start: 20151207, end: 20151207
  101. ADALAT [Concomitant]
     Active Substance: NIFEDIPINE
     Dosage: 30 MG, SOS
     Route: 048
     Dates: start: 20151208, end: 20151208
  102. ADALAT [Concomitant]
     Active Substance: NIFEDIPINE
     Dosage: 30 MG, QD
     Route: 048
     Dates: start: 20151209, end: 20151211
  103. BISOPROLOL FUMARATE. [Concomitant]
     Active Substance: BISOPROLOL FUMARATE
     Dosage: 5 MG, QD
     Route: 048
     Dates: start: 20151223
  104. BACTERIAL LYSATES [Concomitant]
     Dosage: 7 MG, QD
     Route: 048
     Dates: start: 20151213, end: 20151223
  105. LIQUORICE [Concomitant]
     Active Substance: LICORICE
     Dosage: 10 ML, TID
     Route: 048
     Dates: start: 20151219
  106. CRAVIT [Concomitant]
     Active Substance: LEVOFLOXACIN
     Dosage: 100 ML, QD
     Route: 042
     Dates: start: 20151214, end: 20151217
  107. DILTIAZEM HYDROCHLORIDE. [Concomitant]
     Active Substance: DILTIAZEM HYDROCHLORIDE
     Dosage: 30 MG, BID
     Route: 048
     Dates: start: 20151206, end: 20151209
  108. DOPAMINE HYCROCHLORIDE [Concomitant]
     Active Substance: DOPAMINE HYDROCHLORIDE
     Indication: POOR PERIPHERAL CIRCULATION
     Dosage: 10 MG, SOS
     Route: 042
     Dates: start: 20151221, end: 20151221
  109. POLYENE PHOSPHATIDYLCHOLINE [Concomitant]
     Active Substance: PHOSPHOLIPID
     Dosage: 456 MG, TID
     Route: 048
     Dates: start: 20151224, end: 20151228
  110. RECOMBINANT HUMAN ERYTHROPOIETIN [Concomitant]
     Active Substance: ERYTHROPOIETIN
     Indication: RED BLOOD CELL COUNT DECREASED
     Dosage: 1000 IU, SOS
     Route: 061
     Dates: start: 20151207, end: 20151207
  111. COENZYME [Concomitant]
     Active Substance: UBIDECARENONE
     Dosage: 2 DF,  SOS
     Route: 042
     Dates: start: 20151204, end: 20151205
  112. FUROSEMID ^DAK^ [Concomitant]
     Dosage: 40 MG, SOS
     Route: 042
     Dates: start: 20151204, end: 20151204
  113. MYFORTIC [Suspect]
     Active Substance: MYCOPHENOLATE SODIUM
     Dosage: 720 MG, QD
     Route: 065
     Dates: start: 20151208, end: 20151209
  114. MYFORTIC [Suspect]
     Active Substance: MYCOPHENOLATE SODIUM
     Dosage: 720 MG, QD
     Route: 065
     Dates: start: 20151210, end: 20151217
  115. LIVARACINE [Concomitant]
     Dosage: 2500 IU,SOS
     Route: 061
     Dates: start: 20151219, end: 20151219
  116. DICLOFENAC SODIUM W/LIDOCAINE HYDROCHLORIDE [Concomitant]
     Indication: SEIZURE
     Dosage: 1 AMPULE,SOS
     Route: 042
     Dates: start: 20151204, end: 20151204
  117. SMECTA [Concomitant]
     Active Substance: MONTMORILLONITE
     Dosage: 3000 MG, TID
     Route: 048
     Dates: start: 20160110, end: 20160110
  118. PHOSPHOCREATINE SODIUM [Concomitant]
     Active Substance: PHOSPHOCREATINE SODIUM
     Indication: PROPHYLAXIS
     Dosage: 1 G, SOS
     Route: 042
     Dates: start: 20151204, end: 20151204
  119. ALLERZIN//PROMETHAZINE HYDROCHLORIDE [Concomitant]
     Indication: ALLERGY PROPHYLAXIS
     Dosage: 25 MG, SOS
     Route: 030
     Dates: start: 20151211, end: 20151211
  120. POLYENE PHOSPHATIDYLCHOLINE [Concomitant]
     Active Substance: PHOSPHOLIPID
     Dosage: 226 MG, TID
     Route: 048
     Dates: start: 20160101
  121. RECOMBINANT HUMAN ERYTHROPOIETIN [Concomitant]
     Active Substance: ERYTHROPOIETIN
     Dosage: 1000 IU, SOS
     Route: 061
     Dates: start: 20151216, end: 20151216
  122. MUCOSOLVAN [Concomitant]
     Active Substance: AMBROXOL HYDROCHLORIDE
     Dosage: 15 MG, TID
     Route: 055
     Dates: start: 20151224, end: 20151230
  123. MUCOSOLVAN [Concomitant]
     Active Substance: AMBROXOL HYDROCHLORIDE
     Dosage: 30 MG, SOS
     Route: 042
     Dates: start: 20151223, end: 20151223
  124. METHYLPREDNISOLONE. [Suspect]
     Active Substance: METHYLPREDNISOLONE
     Indication: ALLERGY PROPHYLAXIS
     Dosage: 420 MG, QD
     Route: 065
     Dates: start: 20151204, end: 20151205
  125. METHYLPREDNISOLONE. [Suspect]
     Active Substance: METHYLPREDNISOLONE
     Dosage: 40 MG,SOS
     Route: 065
     Dates: start: 20151211, end: 20151211
  126. TACROLIMUS. [Suspect]
     Active Substance: TACROLIMUS
     Dosage: 3 MG, QD
     Route: 065
     Dates: start: 20160111, end: 20160112
  127. ADALAT [Concomitant]
     Active Substance: NIFEDIPINE
     Indication: HYPERTENSION
     Dosage: 30 MG, SOS
     Route: 048
     Dates: start: 20151206, end: 20151206
  128. PHENOBARB//PHENOBARBITAL SODIUM [Concomitant]
     Indication: ANAESTHETIC PREMEDICATION
     Dosage: 100 MG, SOS
     Route: 030
     Dates: start: 20151203, end: 20151203
  129. BACTERIAL LYSATES [Concomitant]
     Indication: INFECTION PROPHYLAXIS
     Dosage: 7 MG, QD
     Route: 048
     Dates: start: 20151213, end: 20151215
  130. LIQUORICE [Concomitant]
     Active Substance: LICORICE
     Indication: COUGH
     Dosage: 10 ML, TID
     Route: 048
     Dates: start: 20151212, end: 20151218
  131. ALOSTIN//ALPROSTADIL [Concomitant]
     Dosage: 10 OT, QD
     Route: 042
     Dates: start: 20151224, end: 20151230
  132. MEROPENEM. [Concomitant]
     Active Substance: MEROPENEM
     Indication: INFLAMMATION
     Dosage: 500 MG, SOS
     Route: 042
     Dates: start: 20151221, end: 20151221
  133. ALBUMIN HUMAN [Concomitant]
     Active Substance: ALBUMIN HUMAN
     Indication: SUPPLEMENTATION THERAPY
     Dosage: 10 G, SOS
     Route: 042
     Dates: start: 20151203, end: 20151203
  134. PHOSPHOCREATINE SODIUM [Concomitant]
     Active Substance: PHOSPHOCREATINE SODIUM
     Dosage: 1 G, SOS
     Route: 042
     Dates: start: 20151204, end: 20151218
  135. POLYENE PHOSPHATIDYLCHOLINE [Concomitant]
     Active Substance: PHOSPHOLIPID
     Dosage: 228 MG, TID
     Route: 048
     Dates: start: 20151228, end: 20151230
  136. MUCOSOLVAN [Concomitant]
     Active Substance: AMBROXOL HYDROCHLORIDE
     Indication: PRODUCTIVE COUGH
     Dosage: 15 MG, TID
     Route: 055
     Dates: start: 20151204, end: 20151223
  137. MUCOSOLVAN [Concomitant]
     Active Substance: AMBROXOL HYDROCHLORIDE
     Dosage: 15 MG, SOS
     Route: 055
     Dates: start: 20151204, end: 20151223
  138. FUROSEMID ^DAK^ [Concomitant]
     Indication: POLYURIA
     Dosage: 40 MG, SOS
     Route: 042
     Dates: start: 20151202, end: 20151202
  139. FUROSEMID ^DAK^ [Concomitant]
     Dosage: 40 MG, QD
     Route: 042
     Dates: start: 20151222, end: 20151223
  140. MEPREDNISONE [Concomitant]
     Active Substance: MEPREDNISONE
     Dosage: 8 MG, UNK
     Route: 065
     Dates: start: 20160215

REACTIONS (13)
  - Cough [Recovered/Resolved]
  - Delayed graft function [Recovered/Resolved]
  - Productive cough [Recovered/Resolved]
  - Renal hypertension [Not Recovered/Not Resolved]
  - Blood creatinine increased [Not Recovered/Not Resolved]
  - Incision site pain [Recovering/Resolving]
  - Pneumonia [Recovered/Resolved]
  - Nephrogenic anaemia [Not Recovered/Not Resolved]
  - Diarrhoea [Recovering/Resolving]
  - Body temperature increased [Recovered/Resolved]
  - Nasopharyngitis [Not Recovered/Not Resolved]
  - Throat irritation [Not Recovered/Not Resolved]
  - Upper respiratory tract infection [Recovering/Resolving]

NARRATIVE: CASE EVENT DATE: 20151205
